FAERS Safety Report 26042360 (Version 1)
Quarter: 2025Q4

REPORT INFORMATION
  Report Type: Spontaneous
  Country: US (occurrence: US)
  Receive Date: 20251113
  Receipt Date: 20251113
  Transmission Date: 20260117
  Serious: Yes (Other)
  Sender: GRIFOLS
  Company Number: US-IGSA-BIG0039420

PATIENT
  Age: 62 Year
  Sex: Male

DRUGS (2)
  1. VISTASEAL [Suspect]
     Active Substance: FIBRINOGEN HUMAN\HUMAN THROMBIN
     Indication: Product use in unapproved indication
     Dosage: 10 MILLILITER
     Dates: start: 2025, end: 2025
  2. VISTASEAL [Suspect]
     Active Substance: FIBRINOGEN HUMAN\HUMAN THROMBIN
     Indication: Spinal operation

REACTIONS (1)
  - Inflammation [Recovering/Resolving]

NARRATIVE: CASE EVENT DATE: 20250101
